FAERS Safety Report 8458665-3 (Version None)
Quarter: 2012Q2

REPORT INFORMATION
  Report Type: 
  Country: None (occurrence: None)
  Receive Date: 20120622
  Receipt Date: 20120615
  Transmission Date: 20120825
  Serious: Yes (Hospitalization)
  Sender: FDA-Public Use
  Company Number: US-BAYER-2011-099499

PATIENT
  Age: 17 Year
  Sex: Female
  Weight: 54 kg

DRUGS (11)
  1. SOMA [Concomitant]
     Dosage: UNK UNK, PRN
  2. YAZ [Suspect]
     Dosage: UNK
  3. PHENERGAN [Concomitant]
     Indication: NAUSEA
     Dosage: 25 MG, PRN
     Route: 048
     Dates: start: 20090721
  4. MAXALT [Concomitant]
     Indication: HEADACHE
     Dosage: 10 MG, PRN
     Route: 048
     Dates: start: 20090721
  5. TORADOL [Concomitant]
     Dosage: 1 TABLET, QID
     Route: 048
  6. ZOMIG [Concomitant]
  7. YASMIN [Suspect]
     Indication: MENSTRUATION IRREGULAR
     Dosage: UNK
     Dates: start: 20090101, end: 20090101
  8. ORAL CONTRACEPTIVE NOS [Concomitant]
  9. LORTAB [Concomitant]
     Indication: PAIN
     Dosage: 5-500 MG TWICE DAILY
     Route: 048
     Dates: start: 20090721
  10. BACTRIM DS [Concomitant]
     Indication: URINARY TRACT INFECTION
     Dosage: 1 TABLET, BID
     Route: 048
  11. PHENAZOPYRIDINE HCL TAB [Concomitant]
     Dosage: 200 MG, UNK
     Route: 048

REACTIONS (6)
  - RENAL VEIN THROMBOSIS [None]
  - EMOTIONAL DISTRESS [None]
  - INJURY [None]
  - THROMBOSIS [None]
  - ANXIETY [None]
  - PAIN [None]
